FAERS Safety Report 4885933-4 (Version None)
Quarter: 2006Q1

REPORT INFORMATION
  Report Type: 
  Country: None (occurrence: None)
  Receive Date: 20060117
  Receipt Date: 20060104
  Transmission Date: 20060701
  Serious: Yes (Congenital Anomaly)
  Sender: FDA-Public Use
  Company Number: GXKR2006GB00445

PATIENT

DRUGS (4)
  1. CITALOPRAM HYDROBROMIDE [Suspect]
     Dosage: 10-30 G, QD, TRANSPLACENTAL
     Route: 064
     Dates: start: 20040504
  2. CEPHRADINE (CEFRADINE) [Concomitant]
  3. GAVISCON (ALGINIC ACID, ALUMINIUM HYDROXIDE GEL, DRIED, MAGNESIUM TRIS [Concomitant]
  4. CLOTRIMAZOLE [Concomitant]

REACTIONS (3)
  - CONGENITAL PULMONARY VALVE ATRESIA [None]
  - DRUG EXPOSURE DURING PREGNANCY [None]
  - VENTRICULAR SEPTAL DEFECT [None]
